FAERS Safety Report 23940573 (Version 1)
Quarter: 2024Q2

REPORT INFORMATION
  Report Type: Spontaneous
  Country: GB (occurrence: GB)
  Receive Date: 20240605
  Receipt Date: 20240605
  Transmission Date: 20240717
  Serious: Yes (Life-Threatening, Hospitalization, Other)
  Sender: FDA-Public Use
  Company Number: GB-ROCHE-3566237

PATIENT
  Age: 39 Year
  Sex: Male
  Weight: 84.9 kg

DRUGS (9)
  1. LENALIDOMIDE [Suspect]
     Active Substance: LENALIDOMIDE
     Indication: Lymphoma
     Dosage: 20 MILLIGRAM
     Route: 048
     Dates: start: 20220928, end: 20221003
  2. LENALIDOMIDE [Suspect]
     Active Substance: LENALIDOMIDE
     Dosage: 20 MILLIGRAM
     Route: 048
     Dates: start: 20221011, end: 20221017
  3. LENALIDOMIDE [Suspect]
     Active Substance: LENALIDOMIDE
     Dosage: 20 MILLIGRAM
     Route: 048
     Dates: start: 20221028
  4. RITUXIMAB [Suspect]
     Active Substance: RITUXIMAB
     Indication: Lymphoma
     Dosage: 750 MILLIGRAM
     Route: 041
     Dates: start: 20220929
  5. RITUXIMAB [Suspect]
     Active Substance: RITUXIMAB
     Dosage: 750 MILLIGRAM
     Route: 041
     Dates: start: 20221012, end: 20221019
  6. RITUXIMAB [Suspect]
     Active Substance: RITUXIMAB
     Dosage: 750 MILLIGRAM
     Route: 041
     Dates: start: 20221028
  7. TAFASITAMAB [Suspect]
     Active Substance: TAFASITAMAB
     Indication: Lymphoma
     Dosage: UNK
     Route: 065
     Dates: start: 20220928, end: 20221005
  8. TAFASITAMAB [Suspect]
     Active Substance: TAFASITAMAB
     Dosage: UNK
     Route: 065
     Dates: start: 20221012, end: 20221019
  9. TAFASITAMAB [Suspect]
     Active Substance: TAFASITAMAB
     Dosage: UNK
     Route: 065
     Dates: start: 20221028

REACTIONS (3)
  - Neutropenia [Recovered/Resolved]
  - Hepatosplenomegaly [Recovered/Resolved]
  - Pleural effusion [Recovered/Resolved]

NARRATIVE: CASE EVENT DATE: 20220930
